FAERS Safety Report 6715437-5 (Version None)
Quarter: 2010Q2

REPORT INFORMATION
  Report Type: 
  Country: None (occurrence: None)
  Receive Date: 20100507
  Receipt Date: 20100507
  Transmission Date: 20101027
  Serious: Yes (Hospitalization)
  Sender: FDA-Public Use
  Company Number: None

PATIENT
  Age: 10 Year
  Sex: Female
  Weight: 41.2773 kg

DRUGS (2)
  1. BENADRYL [Suspect]
     Indication: OROPHARYNGEAL PAIN
     Dosage: 2 TSP 3X DAY PO
     Route: 048
     Dates: start: 20100501, end: 20100505
  2. BENADRYL [Suspect]
     Indication: THROAT IRRITATION
     Dosage: 2 TSP 3X DAY PO
     Route: 048
     Dates: start: 20100501, end: 20100505

REACTIONS (7)
  - APHAGIA [None]
  - CONDITION AGGRAVATED [None]
  - OLIGODIPSIA [None]
  - PAIN [None]
  - PRODUCT QUALITY ISSUE [None]
  - PRURITUS [None]
  - WEIGHT DECREASED [None]
